FAERS Safety Report 24756066 (Version 1)
Quarter: 2024Q4

REPORT INFORMATION
  Report Type: Spontaneous
  Country: TW (occurrence: TW)
  Receive Date: 20241219
  Receipt Date: 20241219
  Transmission Date: 20250115
  Serious: Yes (Other)
  Sender: MERCK
  Company Number: TW-009507513-2412TWN005289

PATIENT
  Age: 37 Year
  Sex: Male

DRUGS (1)
  1. LETERMOVIR [Suspect]
     Active Substance: LETERMOVIR
     Dosage: UNK
     Route: 048
     Dates: start: 20191028

REACTIONS (3)
  - Cytomegalovirus viraemia [Unknown]
  - T-cell type acute leukaemia [Unknown]
  - Acute lymphocytic leukaemia recurrent [Unknown]
